FAERS Safety Report 14204581 (Version 1)
Quarter: 2017Q4

REPORT INFORMATION
  Report Type: Spontaneous
  Country: US (occurrence: None)
  Receive Date: 20171117
  Receipt Date: 20171117
  Transmission Date: 20180321
  Serious: No
  Sender: FDA-Public Use
  Company Number: None

PATIENT
  Age: 41 Year
  Sex: Female

DRUGS (2)
  1. RITUXIMAB. [Suspect]
     Active Substance: RITUXIMAB
     Dates: start: 20150508, end: 20150508
  2. ACCUTANE [Suspect]
     Active Substance: ISOTRETINOIN
     Dates: start: 20150518, end: 20150615

REACTIONS (7)
  - Aspartate aminotransferase increased [None]
  - Drug-induced liver injury [None]
  - Blood bilirubin abnormal [None]
  - Weight decreased [None]
  - Alanine aminotransferase increased [None]
  - Fatigue [None]
  - Toxicity to various agents [None]

NARRATIVE: CASE EVENT DATE: 20150615
